FAERS Safety Report 14153890 (Version 1)
Quarter: 2017Q4

REPORT INFORMATION
  Report Type: Spontaneous
  Country: LT (occurrence: LT)
  Receive Date: 20171102
  Receipt Date: 20171102
  Transmission Date: 20180321
  Serious: Yes (Other)
  Sender: FDA-Public Use
  Company Number: LT-FRESENIUS KABI-FK201709182

PATIENT
  Age: 74 Year
  Sex: Female

DRUGS (5)
  1. THIAMAZOLE [Suspect]
     Active Substance: METHIMAZOLE
     Route: 048
  2. THIAMAZOLE [Suspect]
     Active Substance: METHIMAZOLE
     Route: 065
  3. METHYLPREDNISOLONE (MANUFACTURER UNKNOWN) [Suspect]
     Active Substance: METHYLPREDNISOLONE
     Indication: ENDOCRINE OPHTHALMOPATHY
     Route: 042
     Dates: start: 201502
  4. THIAMAZOLE [Suspect]
     Active Substance: METHIMAZOLE
     Indication: BASEDOW^S DISEASE
     Route: 048
  5. THIAMAZOLE [Suspect]
     Active Substance: METHIMAZOLE
     Route: 065

REACTIONS (3)
  - Drug interaction [Recovered/Resolved]
  - Hypothyroidism [Recovered/Resolved]
  - Drug-induced liver injury [Recovered/Resolved]
